FAERS Safety Report 7258986-6 (Version None)
Quarter: 2011Q1

REPORT INFORMATION
  Report Type: 
  Country: None (occurrence: None)
  Receive Date: 20110129
  Receipt Date: 20100622
  Transmission Date: 20110831
  Serious: No
  Sender: FDA-Public Use
  Company Number: US-ABBOTT-10P-163-0653059-00

PATIENT
  Sex: Male

DRUGS (3)
  1. SIMSTATIN [Concomitant]
     Indication: PRODUCT USED FOR UNKNOWN INDICATION
  2. ZOLOFT [Concomitant]
     Indication: PRODUCT USED FOR UNKNOWN INDICATION
  3. HUMIRA [Suspect]
     Indication: PSORIASIS
     Dosage: 80 MG INITIAL DOSE
     Dates: start: 20100619

REACTIONS (6)
  - INSOMNIA [None]
  - THROAT IRRITATION [None]
  - DRY THROAT [None]
  - HYPERAESTHESIA [None]
  - FORMICATION [None]
  - PRURITUS [None]
